FAERS Safety Report 10415329 (Version 1)
Quarter: 2014Q2

REPORT INFORMATION
  Report Type: Spontaneous
  Country: US (occurrence: None)
  Receive Date: 20140604
  Receipt Date: 20140604
  Transmission Date: 20141212
  Serious: Yes (Hospitalization)
  Sender: FDA-Public Use
  Company Number: 20120326CINRY2777

PATIENT
  Age: 32 Year
  Sex: Female

DRUGS (4)
  1. CINRYZE (C1 ESTERASE INHIBITOR (HUMAN)) (500 UNIT, INJECTION FOR INFUSION) (C1 ESTERASE INHIBITOR (HUMAN)) [Suspect]
     Indication: HEREDITARY ANGIOEDEMA
     Dosage: (1500 UNIT, 2 IN 1 WK), INTRAVENOUS?UNKNOWN - 02/27/2012
     Route: 042
     Dates: end: 20120227
  2. CINRYZE (C1 ESTERASE INHIBITOR (HUMAN)) (500 UNIT, INJECTION FOR INFUSION) (C1 ESTERASE INHIBITOR (HUMAN)) [Suspect]
     Indication: PROPHYLAXIS
     Dosage: (1500 UNIT, 2 IN 1 WK), INTRAVENOUS?UNKNOWN - 02/27/2012
     Route: 042
     Dates: end: 20120227
  3. BERINERT (COMPLEMENT C1 ESTERASE INHIBITOR) [Concomitant]
  4. FIRAZYR (UNKNOWN) [Concomitant]

REACTIONS (5)
  - Hereditary angioedema [None]
  - Urinary tract infection [None]
  - Heart rate increased [None]
  - Therapy change [None]
  - Abdominal distension [None]
